FAERS Safety Report 14241422 (Version 8)
Quarter: 2018Q3

REPORT INFORMATION
  Report Type: Spontaneous
  Country: US (occurrence: US)
  Receive Date: 20171130
  Receipt Date: 20180827
  Transmission Date: 20181010
  Serious: Yes (Other)
  Sender: FDA-Public Use
  Company Number: US-BRISTOL-MYERS SQUIBB COMPANY-BMS-2017-108873

PATIENT
  Sex: Female
  Weight: 79.37 kg

DRUGS (1)
  1. ORENCIA [Suspect]
     Active Substance: ABATACEPT
     Indication: RHEUMATOID ARTHRITIS
     Dosage: 125 MG, QWK
     Route: 058
     Dates: start: 201501

REACTIONS (8)
  - Drug ineffective [Unknown]
  - Bladder operation [Unknown]
  - Sinus disorder [Unknown]
  - Pain [Unknown]
  - Viral infection [Unknown]
  - Hypersensitivity [Unknown]
  - Tooth disorder [Unknown]
  - Urinary tract infection [Unknown]
